FAERS Safety Report 23272608 (Version 2)
Quarter: 2023Q4

REPORT INFORMATION
  Report Type: Spontaneous
  Country: None (occurrence: US)
  Receive Date: 20231207
  Receipt Date: 20231220
  Transmission Date: 20240110
  Serious: Yes (Other)
  Sender: FDA-Public Use
  Company Number: US-Amphastar Pharmaceuticals, Inc.-2149066

PATIENT
  Age: 51 Year
  Sex: Male

DRUGS (2)
  1. GLUCAGON [Suspect]
     Active Substance: GLUCAGON\GLUCAGON HYDROCHLORIDE\WATER
     Indication: Type 1 diabetes mellitus
     Route: 065
  2. DEVICE [Suspect]
     Active Substance: DEVICE

REACTIONS (2)
  - Drug ineffective [Recovered/Resolved]
  - Emergency care [Recovered/Resolved]

NARRATIVE: CASE EVENT DATE: 20231118
